FAERS Safety Report 7679845-0 (Version None)
Quarter: 2011Q3

REPORT INFORMATION
  Report Type: 
  Country: None (occurrence: None)
  Receive Date: 20110812
  Receipt Date: 20110809
  Transmission Date: 20111222
  Serious: Yes (Other)
  Sender: FDA-Public Use
  Company Number: NO-PFIZER INC-2011183132

PATIENT
  Sex: Male

DRUGS (1)
  1. SULFASALAZINE [Suspect]
     Dosage: 7 TABLETS DAILY

REACTIONS (3)
  - HYPOMETABOLISM [None]
  - WITHDRAWAL SYNDROME [None]
  - DEPRESSION [None]
